FAERS Safety Report 21065519 (Version 2)
Quarter: 2022Q4

REPORT INFORMATION
  Report Type: Report from Study
  Country: CA (occurrence: CA)
  Receive Date: 20220711
  Receipt Date: 20221005
  Transmission Date: 20230113
  Serious: Yes (Other)
  Sender: FDA-Public Use
  Company Number: CA-OTSUKA-2022_012004

PATIENT
  Sex: Female

DRUGS (1)
  1. CEDAZURIDINE\DECITABINE [Suspect]
     Active Substance: CEDAZURIDINE\DECITABINE
     Indication: Myelodysplastic syndrome
     Dosage: 3 DF (3 TABLETS)
     Route: 065
     Dates: start: 20220312, end: 202207

REACTIONS (3)
  - Red blood cell transfusion [Unknown]
  - Full blood count abnormal [Unknown]
  - Product use issue [Unknown]
